FAERS Safety Report 11134280 (Version 1)
Quarter: 2015Q2

REPORT INFORMATION
  Report Type: Spontaneous
  Country: US (occurrence: US)
  Receive Date: 20150525
  Receipt Date: 20150525
  Transmission Date: 20150821
  Serious: Yes (Death)
  Sender: FDA-Public Use
  Company Number: US-CIPLA LTD.-2015US03909

PATIENT

DRUGS (3)
  1. CAPEGARD [Suspect]
     Active Substance: CAPECITABINE
     Indication: NEOPLASM MALIGNANT
     Dosage: 1500 MG/M2 PER DAY ON DAYS 1 TO 14, IN DIVIDED DOSES TWICE DAILY, EVERY 21 DAYS FOR FOUR CYCLES
     Route: 065
  2. CAPEGARD [Suspect]
     Active Substance: CAPECITABINE
     Dosage: 1330 MG/M2 PER DAY, IN DIVIDED DOSES TWICE DAILY, 7 DAYS PER WEEK
     Route: 065
  3. GEMCITABINE [Suspect]
     Active Substance: GEMCITABINE\GEMCITABINE HYDROCHLORIDE
     Indication: NEOPLASM MALIGNANT
     Dosage: 1,000 MG/M2 INTRAVENOUSLY ON DAYS 1 AND 8 EVERY 21 DAYS FOR FOUR CYCLES
     Route: 042

REACTIONS (1)
  - Small intestinal haemorrhage [Fatal]
